FAERS Safety Report 11111756 (Version 1)
Quarter: 2015Q2

REPORT INFORMATION
  Report Type: Report from Study
  Country: GB (occurrence: GB)
  Receive Date: 20150514
  Receipt Date: 20150514
  Transmission Date: 20150821
  Serious: Yes (Other)
  Sender: FDA-Public Use
  Company Number: GB-ROCHE-1555717

PATIENT
  Age: 79 Year
  Sex: Female

DRUGS (8)
  1. ETANERCEPT [Concomitant]
     Active Substance: ETANERCEPT
     Route: 065
     Dates: start: 20150323
  2. IBANDRONIC ACID [Concomitant]
     Active Substance: IBANDRONIC ACID
     Dosage: STARTED BEFORE 2 YEARS
     Route: 065
  3. ETANERCEPT [Concomitant]
     Active Substance: ETANERCEPT
     Route: 065
     Dates: start: 20150219
  4. PLAQUENIL [Concomitant]
     Active Substance: HYDROXYCHLOROQUINE SULFATE
     Dosage: STARTED BEFORE 2 YEARS
     Route: 048
  5. OMEPRAZOLE. [Concomitant]
     Active Substance: OMEPRAZOLE
     Indication: PROPHYLAXIS
     Dosage: STARTED BEFORE 2YEARS
     Route: 048
  6. ROACTEMRA [Suspect]
     Active Substance: TOCILIZUMAB
     Indication: RHEUMATOID ARTHRITIS
     Route: 058
     Dates: start: 20150305
  7. AZATHIOPRINE. [Concomitant]
     Active Substance: AZATHIOPRINE
     Dosage: STARTED BEFORE 2 YEARS
     Route: 048
  8. PREDNISONE. [Concomitant]
     Active Substance: PREDNISONE
     Dosage: STARTED BEFORE 2 YEARS
     Route: 048

REACTIONS (13)
  - Insomnia [Unknown]
  - Peripheral swelling [Unknown]
  - Arthralgia [Recovered/Resolved]
  - Tenderness [Unknown]
  - Nausea [Unknown]
  - Pain [Recovered/Resolved]
  - Motor dysfunction [Recovered/Resolved]
  - Mobility decreased [Recovered/Resolved]
  - Joint swelling [Unknown]
  - Musculoskeletal pain [Recovered/Resolved]
  - Joint swelling [Recovered/Resolved]
  - Pain in extremity [Recovered/Resolved]
  - Fatigue [Unknown]

NARRATIVE: CASE EVENT DATE: 20150312
